FAERS Safety Report 10587039 (Version 1)
Quarter: 2014Q4

REPORT INFORMATION
  Report Type: Spontaneous
  Country: NL (occurrence: NL)
  Receive Date: 20141117
  Receipt Date: 20141117
  Transmission Date: 20150529
  Serious: Yes (Other)
  Sender: FDA-Public Use
  Company Number: NL-TAKEDA-2014MPI003028

PATIENT

DRUGS (6)
  1. DEXAMETHASONE. [Suspect]
     Active Substance: DEXAMETHASONE
     Dosage: 10 MG/M2, IN 3 DOSES FOR 2 WEEKS
     Route: 042
  2. VINCRISTINE [Suspect]
     Active Substance: VINCRISTINE
     Indication: ACUTE LYMPHOCYTIC LEUKAEMIA
     Dosage: 1.5 MG/M2, WITH A MAXIMUM OF 2 MG AS 1-HOUR INFUSION ON DAYS 8 AND 15
     Route: 065
  3. METHOTREXATE [Suspect]
     Active Substance: METHOTREXATE
     Indication: ACUTE LYMPHOCYTIC LEUKAEMIA
     Dosage: DOSE AGE-ADJUSTED
     Route: 037
  4. VELCADE [Suspect]
     Active Substance: BORTEZOMIB
     Indication: ACUTE LYMPHOCYTIC LEUKAEMIA
     Dosage: 1.3 MG/M2, FOR 4 DOSES IN GROUP EARLY ON DAYS 1, 4, 8 AND 11
     Route: 042
  5. VELCADE [Suspect]
     Active Substance: BORTEZOMIB
     Dosage: 1.3 MG/M2, FOR 4 DOSES IN GROUP LATE ON DAYS 8, 11, 15 AND 18.
     Route: 042
  6. DEXAMETHASONE. [Suspect]
     Active Substance: DEXAMETHASONE
     Indication: ACUTE LYMPHOCYTIC LEUKAEMIA
     Dosage: 10 MG/M2, QD, IN 3 DOSES FOR 2 WEEKS
     Route: 048

REACTIONS (3)
  - Neuropathy peripheral [Unknown]
  - Haemorrhage [Unknown]
  - Haematuria [Unknown]
